FAERS Safety Report 5367773-5 (Version None)
Quarter: 2007Q2

REPORT INFORMATION
  Report Type: 
  Country: None (occurrence: None)
  Receive Date: 20070622
  Receipt Date: 20070313
  Transmission Date: 20071010
  Serious: No
  Sender: FDA-Public Use
  Company Number: US-BRISTOL-MYERS SQUIBB COMPANY-13713029

PATIENT
  Age: 81 Year
  Sex: Male
  Weight: 77 kg

DRUGS (4)
  1. MUTAMYCIN [Suspect]
     Indication: BLADDER CANCER
     Dates: start: 20020101, end: 20060101
  2. ATENOLOL [Concomitant]
  3. ALTACE [Concomitant]
  4. LIPITOR [Concomitant]

REACTIONS (4)
  - ECZEMA [None]
  - FALL [None]
  - URINARY INCONTINENCE [None]
  - VERTIGO [None]
